FAERS Safety Report 22061397 (Version 1)
Quarter: 2023Q1

REPORT INFORMATION
  Report Type: Report from Study
  Country: DE (occurrence: DE)
  Receive Date: 20230304
  Receipt Date: 20230304
  Transmission Date: 20230418
  Serious: Yes (Other)
  Sender: FDA-Public Use
  Company Number: DE-ABBVIE-4134061

PATIENT
  Age: 56 Year
  Sex: Female

DRUGS (1)
  1. SKYRIZI [Suspect]
     Active Substance: RISANKIZUMAB-RZAA
     Indication: Psoriatic arthropathy
     Route: 058
     Dates: start: 20220614

REACTIONS (3)
  - Vulvovaginal mycotic infection [Not Recovered/Not Resolved]
  - Cystitis [Not Recovered/Not Resolved]
  - Eye operation [Recovered/Resolved]

NARRATIVE: CASE EVENT DATE: 20220830
